FAERS Safety Report 9831456 (Version 2)
Quarter: 2014Q1

REPORT INFORMATION
  Report Type: Report from Study
  Country: CO (occurrence: CO)
  Receive Date: 20140121
  Receipt Date: 20140129
  Transmission Date: 20141002
  Serious: Yes (Death, Other)
  Sender: FDA-Public Use
  Company Number: CO-ROCHE-1336444

PATIENT
  Age: 65 Year
  Sex: Male

DRUGS (3)
  1. RANIBIZUMAB [Suspect]
     Indication: PRODUCT USED FOR UNKNOWN INDICATION
     Route: 050
     Dates: start: 201309
  2. LOSARTAN [Concomitant]
  3. GLIBENCLAMIDE [Concomitant]
     Route: 065

REACTIONS (3)
  - Myocardial infarction [Fatal]
  - Convulsion [Unknown]
  - Fall [Unknown]
